FAERS Safety Report 9904715 (Version 2)
Quarter: 2014Q1

REPORT INFORMATION
  Report Type: Spontaneous
  Country: RO (occurrence: RO)
  Receive Date: 20140218
  Receipt Date: 20140314
  Transmission Date: 20141002
  Serious: Yes (Other)
  Sender: FDA-Public Use
  Company Number: RO-JNJFOC-20140206942

PATIENT
  Age: 3 Year
  Sex: Female

DRUGS (5)
  1. DOXORUBICIN [Suspect]
     Indication: NEPHROBLASTOMA
     Route: 042
  2. DOXORUBICIN [Suspect]
     Indication: NEPHROBLASTOMA
     Route: 042
  3. CARBOPLATIN [Suspect]
     Indication: NEPHROBLASTOMA
     Route: 065
  4. CYCLOPHOSPHAMIDE [Suspect]
     Indication: NEPHROBLASTOMA
     Route: 065
  5. VP16 [Suspect]
     Indication: NEPHROBLASTOMA
     Route: 065

REACTIONS (2)
  - Bone marrow failure [Recovered/Resolved]
  - Off label use [Unknown]
